FAERS Safety Report 20862149 (Version 2)
Quarter: 2022Q2

REPORT INFORMATION
  Report Type: Spontaneous
  Country: FR (occurrence: FR)
  Receive Date: 20220523
  Receipt Date: 20220606
  Transmission Date: 20220720
  Serious: Yes (Death, Hospitalization)
  Sender: FDA-Public Use
  Company Number: None

PATIENT
  Age: 20 Year
  Sex: Male
  Weight: 39 kg

DRUGS (11)
  1. METHYLPREDNISOLONE [Suspect]
     Active Substance: METHYLPREDNISOLONE
     Indication: Chemotherapy
     Dosage: UNK
     Route: 042
     Dates: start: 20211116, end: 20211119
  2. ETOPOSIDE [Suspect]
     Active Substance: ETOPOSIDE
     Indication: Chemotherapy
     Dosage: UNK
     Route: 042
     Dates: start: 20211116, end: 20211118
  3. DOXORUBICIN [Suspect]
     Active Substance: DOXORUBICIN
     Indication: Chemotherapy
     Dosage: 35 MILLIGRAM
     Route: 042
     Dates: start: 20211116, end: 20211116
  4. DOXORUBICIN [Suspect]
     Active Substance: DOXORUBICIN
     Dosage: 35 DOSAGE FORM
     Route: 042
     Dates: start: 20211116, end: 20211116
  5. MESNA [Suspect]
     Active Substance: MESNA
     Indication: Chemotherapy
     Dosage: UNK
     Route: 042
     Dates: start: 20211116, end: 20211117
  6. CYCLOPHOSPHAMIDE [Suspect]
     Active Substance: CYCLOPHOSPHAMIDE
     Indication: Chemotherapy
     Dosage: 1262.5 MILLIGRAM (1262.5 MG)
     Route: 042
     Dates: start: 20211116, end: 20211116
  7. PROCARBAZINE [Suspect]
     Active Substance: PROCARBAZINE
     Indication: Chemotherapy
     Dosage: 150 MILLIGRAM, QD (150MG/J)
     Route: 042
     Dates: start: 20211116, end: 20211119
  8. PROCARBAZINE [Suspect]
     Active Substance: PROCARBAZINE
     Dosage: 150 DOSAGE FORM
     Dates: start: 20211116, end: 20211119
  9. MESNA [Suspect]
     Active Substance: MESNA
     Indication: Chemotherapy
     Dosage: UNK
     Route: 042
     Dates: start: 20211116, end: 20211117
  10. CYCLOPHOSPHAMIDE [Suspect]
     Active Substance: CYCLOPHOSPHAMIDE
     Indication: Chemotherapy
     Dosage: 1262.5 DOSAGE FORM
     Route: 042
     Dates: start: 20211116, end: 20211116
  11. ETOPOSIDE [Suspect]
     Active Substance: ETOPOSIDE
     Indication: Chemotherapy
     Dosage: UNK
     Dates: start: 20211116, end: 20211118

REACTIONS (4)
  - Hypovolaemic shock [Fatal]
  - Acute kidney injury [Fatal]
  - General physical health deterioration [Not Recovered/Not Resolved]
  - Vomiting [Recovering/Resolving]

NARRATIVE: CASE EVENT DATE: 20211121
